FAERS Safety Report 21944437 (Version 2)
Quarter: 2023Q1

REPORT INFORMATION
  Report Type: Other
  Country: US (occurrence: None)
  Receive Date: 20230202
  Receipt Date: 20230210
  Transmission Date: 20230417
  Serious: Yes (Other)
  Sender: FDA-Public Use
  Company Number: US-ROCHE-3218725

PATIENT
  Age: 58 Year
  Sex: Male

DRUGS (1)
  1. XELODA [Suspect]
     Active Substance: CAPECITABINE
     Indication: Colon cancer
     Dosage: TAKE 3 TABLET(S) BY MOUTH TWICE A DAY FOR 14 DAYS, THEN 7 DAYS OFF
     Route: 048

REACTIONS (2)
  - Metastases to liver [Unknown]
  - Gait disturbance [Unknown]
